FAERS Safety Report 13632227 (Version 1)
Quarter: 2017Q2

REPORT INFORMATION
  Report Type: Spontaneous
  Country: US (occurrence: US)
  Receive Date: 20170531
  Receipt Date: 20170531
  Transmission Date: 20170830
  Serious: No
  Sender: FDA-Public Use
  Company Number: US-ASTELLAS-1448746

PATIENT
  Age: 65 Year
  Sex: Female

DRUGS (1)
  1. TARCEVA [Suspect]
     Active Substance: ERLOTINIB HYDROCHLORIDE
     Indication: LUNG NEOPLASM MALIGNANT
     Route: 065
     Dates: start: 20130820

REACTIONS (5)
  - Erythema of eyelid [Unknown]
  - Eyelid skin dryness [Unknown]
  - Photophobia [Unknown]
  - Eyelid oedema [Unknown]
  - Lacrimation disorder [Unknown]

NARRATIVE: CASE EVENT DATE: 20140717
